FAERS Safety Report 25483909 (Version 1)
Quarter: 2025Q2

REPORT INFORMATION
  Report Type: Spontaneous
  Country: US (occurrence: US)
  Receive Date: 20250626
  Receipt Date: 20250626
  Transmission Date: 20250717
  Serious: Yes (Other)
  Sender: PFIZER
  Company Number: US-PFIZER INC-PV202500075647

PATIENT
  Age: 66 Year
  Sex: Female

DRUGS (2)
  1. CYTARABINE [Suspect]
     Active Substance: CYTARABINE
     Indication: Acute promyelocytic leukaemia
  2. DOXORUBICIN HYDROCHLORIDE [Suspect]
     Active Substance: DOXORUBICIN HYDROCHLORIDE
     Indication: Acute promyelocytic leukaemia

REACTIONS (4)
  - Acute promyelocytic leukaemia [Unknown]
  - Malignant neoplasm progression [Unknown]
  - Hidradenitis [Recovered/Resolved]
  - Necrosis [Recovered/Resolved]
